FAERS Safety Report 23230163 (Version 1)
Quarter: 2023Q4

REPORT INFORMATION
  Report Type: Report from Study
  Country: US (occurrence: US)
  Receive Date: 20231127
  Receipt Date: 20231127
  Transmission Date: 20240110
  Serious: Yes (Hospitalization, Other)
  Sender: FDA-Public Use
  Company Number: US-BEH-2023165667

PATIENT
  Age: 42 Year
  Sex: Male
  Weight: 74.6 kg

DRUGS (1)
  1. HIZENTRA [Suspect]
     Active Substance: HUMAN IMMUNOGLOBULIN G
     Indication: Product used for unknown indication
     Route: 065

REACTIONS (4)
  - Progressive multifocal leukoencephalopathy [Unknown]
  - Walking disability [Unknown]
  - Unresponsive to stimuli [Unknown]
  - Incontinence [Unknown]

NARRATIVE: CASE EVENT DATE: 20231026
